FAERS Safety Report 7338572-X (Version None)
Quarter: 2011Q1

REPORT INFORMATION
  Report Type: 
  Country: None (occurrence: None)
  Receive Date: 20110308
  Receipt Date: 20110223
  Transmission Date: 20110831
  Serious: Yes (Other)
  Sender: FDA-Public Use
  Company Number: IE-ELI_LILLY_AND_COMPANY-IE201102006781

PATIENT
  Age: 48 Year
  Sex: Male

DRUGS (4)
  1. ZOPLICONE [Concomitant]
  2. ZYPREXA [Suspect]
  3. RAMIPRIL [Concomitant]
  4. LITHIUM CARBONATE [Concomitant]

REACTIONS (1)
  - DEEP VEIN THROMBOSIS [None]
